FAERS Safety Report 8062017-8 (Version None)
Quarter: 2012Q1

REPORT INFORMATION
  Report Type: 
  Country: None (occurrence: None)
  Receive Date: 20120123
  Receipt Date: 20120109
  Transmission Date: 20120608
  Serious: Yes (Hospitalization)
  Sender: FDA-Public Use
  Company Number: CA-JNJFOC-20120106860

PATIENT
  Sex: Male
  Weight: 73.4 kg

DRUGS (2)
  1. REMICADE [Suspect]
     Indication: COLITIS ULCERATIVE
     Route: 042
     Dates: start: 20110920
  2. AZATHIOPRINE [Concomitant]
     Dates: start: 20111101, end: 20111201

REACTIONS (3)
  - APPENDICITIS [None]
  - HERPES ZOSTER [None]
  - TINEA PEDIS [None]
